FAERS Safety Report 9708962 (Version 1)
Quarter: 2013Q4

REPORT INFORMATION
  Report Type: Spontaneous
  Country: PT (occurrence: None)
  Receive Date: 20131122
  Receipt Date: 20131122
  Transmission Date: 20140711
  Serious: Yes (Other)
  Sender: FDA-Public Use
  Company Number: 2015503

PATIENT
  Age: 63 Year
  Sex: Female
  Weight: 65 kg

DRUGS (11)
  1. DOCETAXEL [Suspect]
     Indication: BREAST CANCER
     Dosage: 120 MG MILLIGRAM(S) (1 DAY), INTRAVENOUS (NOT OTHERWISE SPECIFIED)
     Route: 042
     Dates: start: 20130205
  2. FILGRASTIM [Concomitant]
  3. LORAZEPAM [Concomitant]
  4. SIMVASTATIN [Concomitant]
  5. ONDANSETRON [Concomitant]
  6. METHYLPREDNISOLONE [Concomitant]
  7. RANITIDINE [Concomitant]
  8. ATORVASTATIN /01326101/ [Concomitant]
  9. NEBIVOLOL [Concomitant]
  10. PREDNISOLONE [Concomitant]
  11. SODUIM CHLORIDE [Concomitant]

REACTIONS (3)
  - Feeling hot [None]
  - Throat irritation [None]
  - Erythema [None]
